FAERS Safety Report 9888310 (Version 1)
Quarter: 2014Q1

REPORT INFORMATION
  Report Type: Spontaneous
  Country: US (occurrence: US)
  Receive Date: 20140211
  Receipt Date: 20140211
  Transmission Date: 20141002
  Serious: No
  Sender: FDA-Public Use
  Company Number: US-PFIZER INC-2014036776

PATIENT
  Age: 72 Year
  Sex: Female
  Weight: 72.56 kg

DRUGS (1)
  1. AMLODIPINE BESILATE [Suspect]
     Indication: BLOOD PRESSURE ABNORMAL
     Dosage: 10 MG, DAILY

REACTIONS (2)
  - Drug hypersensitivity [Unknown]
  - Throat irritation [Unknown]
